FAERS Safety Report 8618926-1 (Version None)
Quarter: 2012Q3

REPORT INFORMATION
  Report Type: 
  Country: None (occurrence: None)
  Receive Date: 20120824
  Receipt Date: 20120817
  Transmission Date: 20120928
  Serious: No
  Sender: FDA-Public Use
  Company Number: US-B.I. PHARMACEUTICALS,INC./RIDGEFIELD-2012-BP-19973BP

PATIENT
  Sex: Female

DRUGS (2)
  1. ZANTAC 75 [Suspect]
     Indication: DYSPEPSIA
     Dosage: 75 MG
     Route: 048
     Dates: start: 20110101
  2. ZANTAC 75 [Suspect]

REACTIONS (4)
  - DIZZINESS [None]
  - VISION BLURRED [None]
  - INTENTIONAL DRUG MISUSE [None]
  - BLOOD SODIUM DECREASED [None]
